FAERS Safety Report 24333560 (Version 1)
Quarter: 2024Q3

REPORT INFORMATION
  Report Type: Spontaneous
  Country: TR (occurrence: TR)
  Receive Date: 20240918
  Receipt Date: 20240918
  Transmission Date: 20241017
  Serious: Yes (Death, Other)
  Sender: BAYER
  Company Number: TR-BAYER-2024A131670

PATIENT
  Age: 66 Year
  Sex: Female
  Weight: 79 kg

DRUGS (2)
  1. STIVARGA [Suspect]
     Active Substance: REGORAFENIB MONOHYDRATE
     Indication: Colon cancer metastatic
     Dosage: 80 MG, QD
     Route: 048
     Dates: start: 20240703
  2. STIVARGA [Suspect]
     Active Substance: REGORAFENIB MONOHYDRATE
     Indication: Colon cancer metastatic
     Dosage: 2 TABLETS FOR 3 DAYS AND 3 TABLETS FOR THE 3 DAYS
     Route: 048
     Dates: end: 20240728

REACTIONS (8)
  - Pyrexia [Fatal]
  - Respiratory distress [Fatal]
  - Pulmonary haemorrhage [Fatal]
  - Acute respiratory distress syndrome [Fatal]
  - Confusional state [None]
  - Disseminated intravascular coagulation [None]
  - Platelet count decreased [None]
  - Off label use [None]

NARRATIVE: CASE EVENT DATE: 20240703
